FAERS Safety Report 6734952-1 (Version None)
Quarter: 2010Q2

REPORT INFORMATION
  Report Type: 
  Country: None (occurrence: None)
  Receive Date: 20100521
  Receipt Date: 20100510
  Transmission Date: 20101027
  Serious: Yes (Other)
  Sender: FDA-Public Use
  Company Number: US-PFIZER INC-2009302227

PATIENT
  Sex: Male

DRUGS (1)
  1. PROCARDIA [Suspect]

REACTIONS (2)
  - AMNESIA [None]
  - HYPOACUSIS [None]
